FAERS Safety Report 10053155 (Version 1)
Quarter: 2014Q2

REPORT INFORMATION
  Report Type: Spontaneous
  Country: KR (occurrence: KR)
  Receive Date: 20140402
  Receipt Date: 20140402
  Transmission Date: 20141212
  Serious: Yes (Death, Hospitalization)
  Sender: FDA-Public Use
  Company Number: KR-JNJFOC-20140315605

PATIENT
  Age: 61 Year
  Sex: Male

DRUGS (1)
  1. TOPIRAMATE [Suspect]
     Indication: STATUS EPILEPTICUS
     Dosage: LOADING DOSE
     Route: 048

REACTIONS (3)
  - Brain injury [Fatal]
  - Convulsion [Not Recovered/Not Resolved]
  - Off label use [Unknown]
